FAERS Safety Report 8375510-5 (Version None)
Quarter: 2012Q1

REPORT INFORMATION
  Report Type: 
  Country: None (occurrence: None)
  Receive Date: 20120323
  Receipt Date: 20110404
  Transmission Date: 20120608
  Serious: Yes (Other)
  Sender: FDA-Public Use
  Company Number: 163-21880-11020071

PATIENT
  Age: 68 Year
  Sex: Female

DRUGS (11)
  1. FERROUS SULFATE TAB [Concomitant]
  2. LISINOPRIL [Concomitant]
  3. PRAVASTATIN [Concomitant]
  4. REVLIMID [Suspect]
     Indication: REFRACTORY ANAEMIA WITH RINGED SIDEROBLASTS
     Dosage: 10 MG, 1 IN 1 D, PO, 2.5 MG, 1 IN 2 D, PO, 5 MG, 1 IN 1 D, PO
     Route: 048
     Dates: start: 20110113, end: 20110224
  5. REVLIMID [Suspect]
     Indication: MYELODYSPLASTIC SYNDROME
     Dosage: 10 MG, 1 IN 1 D, PO, 2.5 MG, 1 IN 2 D, PO, 5 MG, 1 IN 1 D, PO
     Route: 048
     Dates: start: 20110113, end: 20110224
  6. REVLIMID [Suspect]
     Indication: REFRACTORY ANAEMIA WITH RINGED SIDEROBLASTS
     Dosage: 10 MG, 1 IN 1 D, PO, 2.5 MG, 1 IN 2 D, PO, 5 MG, 1 IN 1 D, PO
     Route: 048
     Dates: start: 20100923, end: 20101007
  7. REVLIMID [Suspect]
     Indication: MYELODYSPLASTIC SYNDROME
     Dosage: 10 MG, 1 IN 1 D, PO, 2.5 MG, 1 IN 2 D, PO, 5 MG, 1 IN 1 D, PO
     Route: 048
     Dates: start: 20100923, end: 20101007
  8. REVLIMID [Suspect]
     Indication: REFRACTORY ANAEMIA WITH RINGED SIDEROBLASTS
     Dosage: 10 MG, 1 IN 1 D, PO, 2.5 MG, 1 IN 2 D, PO, 5 MG, 1 IN 1 D, PO
     Route: 048
     Dates: start: 20110224
  9. REVLIMID [Suspect]
     Indication: MYELODYSPLASTIC SYNDROME
     Dosage: 10 MG, 1 IN 1 D, PO, 2.5 MG, 1 IN 2 D, PO, 5 MG, 1 IN 1 D, PO
     Route: 048
     Dates: start: 20110224
  10. CALCIUM WITH VITAMIN D (CALCIUM WITH VITAMIN D) [Concomitant]
  11. LEVOTHYROXINE SODIUM [Concomitant]

REACTIONS (9)
  - HYPERCALCAEMIA [None]
  - NAUSEA [None]
  - ASTHENIA [None]
  - HYPOTENSION [None]
  - PLATELET COUNT DECREASED [None]
  - DEHYDRATION [None]
  - FATIGUE [None]
  - DIZZINESS [None]
  - VOMITING [None]
